FAERS Safety Report 8206308-6 (Version None)
Quarter: 2012Q1

REPORT INFORMATION
  Report Type: 
  Country: None (occurrence: None)
  Receive Date: 20120313
  Receipt Date: 20120306
  Transmission Date: 20120608
  Serious: Yes (Other)
  Sender: FDA-Public Use
  Company Number: PHHY2010CA03624

PATIENT
  Sex: Male

DRUGS (3)
  1. SANDOSTATIN LAR [Suspect]
     Dosage: 30 MG, EVERY 2 WEEKS
     Route: 030
  2. SANDOSTATIN LAR [Suspect]
     Dosage: 30 MG, TIW
     Route: 030
     Dates: start: 20090220
  3. SANDOSTATIN LAR [Suspect]
     Indication: METASTATIC CARCINOID TUMOUR
     Dosage: 30 MG, BIW
     Route: 030
     Dates: start: 20090220

REACTIONS (16)
  - CYSTITIS [None]
  - EYE SWELLING [None]
  - INFLUENZA LIKE ILLNESS [None]
  - ABDOMINAL PAIN [None]
  - ABDOMINAL PAIN UPPER [None]
  - VOMITING [None]
  - CONSTIPATION [None]
  - URINARY TRACT INFECTION [None]
  - DIARRHOEA [None]
  - INSOMNIA [None]
  - FATIGUE [None]
  - BLOOD CREATININE DECREASED [None]
  - FAECALOMA [None]
  - BLOOD PRESSURE SYSTOLIC INCREASED [None]
  - PAIN [None]
  - MYALGIA [None]
